FAERS Safety Report 10354441 (Version 1)
Quarter: 2014Q3

REPORT INFORMATION
  Report Type: Report from Study
  Country: CO (occurrence: CO)
  Receive Date: 20140731
  Receipt Date: 20140731
  Transmission Date: 20150326
  Serious: Yes (Hospitalization)
  Sender: FDA-Public Use
  Company Number: CO-US-EMD SERONO, INC.-7310426

PATIENT
  Sex: Male
  Weight: 55 kg

DRUGS (1)
  1. SAIZEN [Suspect]
     Active Substance: SOMATROPIN
     Indication: BODY HEIGHT BELOW NORMAL
     Route: 058
     Dates: end: 20130620

REACTIONS (3)
  - Eye pain [Unknown]
  - VIIth nerve paralysis [Not Recovered/Not Resolved]
  - Migraine [Unknown]
